FAERS Safety Report 18577025 (Version 2)
Quarter: 2021Q2

REPORT INFORMATION
  Report Type: Spontaneous
  Country: RU (occurrence: RU)
  Receive Date: 20201204
  Receipt Date: 20210413
  Transmission Date: 20210717
  Serious: Yes (Death, Other)
  Sender: FDA-Public Use
  Company Number: RU-IPSEN BIOPHARMACEUTICALS, INC.-2020-23967

PATIENT

DRUGS (1)
  1. DYSPORT [Suspect]
     Active Substance: ABOBOTULINUMTOXINA
     Indication: SKIN COSMETIC PROCEDURE
     Dosage: NOT REPORTED
     Route: 065

REACTIONS (2)
  - Aortic aneurysm [Unknown]
  - Death [Fatal]
